FAERS Safety Report 4559235-X (Version None)
Quarter: 2005Q1

REPORT INFORMATION
  Report Type: 
  Country: None (occurrence: None)
  Receive Date: 20050121
  Receipt Date: 20050121
  Transmission Date: 20050727
  Serious: Yes (Hospitalization)
  Sender: FDA-Public Use
  Company Number: None

PATIENT
  Sex: Female

DRUGS (7)
  1. NAPROXEN [Suspect]
     Indication: BACK PAIN
     Dosage: ORAL
     Route: 048
     Dates: start: 20040601, end: 20040630
  2. BEXTRA [Suspect]
     Indication: BACK PAIN
     Dosage: ORAL
     Route: 048
     Dates: start: 20040601, end: 20040630
  3. PLAVIX [Concomitant]
  4. CLONIDINE [Concomitant]
  5. VERAPAMIL [Concomitant]
  6. GLIPIZIDE [Concomitant]
  7. CAPTOPRIL [Concomitant]

REACTIONS (1)
  - RENAL PAPILLARY NECROSIS [None]
